FAERS Safety Report 19716983 (Version 2)
Quarter: 2022Q2

REPORT INFORMATION
  Report Type: Spontaneous
  Country: GB (occurrence: GB)
  Receive Date: 20210819
  Receipt Date: 20220408
  Transmission Date: 20220721
  Serious: Yes (Other)
  Sender: FDA-Public Use
  Company Number: None

PATIENT
  Age: 65 Year
  Sex: Male

DRUGS (8)
  1. RYBELSUS [Suspect]
     Active Substance: SEMAGLUTIDE
     Indication: Type 2 diabetes mellitus
     Dosage: 3 MG
     Route: 048
     Dates: start: 20210709, end: 20210720
  2. FENOFIBRATE [Concomitant]
     Active Substance: FENOFIBRATE
     Dosage: UNK
     Route: 065
  3. GLUCOPHAGE [Concomitant]
     Active Substance: METFORMIN HYDROCHLORIDE
     Dosage: UNK
     Route: 065
  4. OMEPRAZOLE SODIUM [Concomitant]
     Active Substance: OMEPRAZOLE SODIUM
     Dosage: UNK
     Route: 065
  5. PIOGLITAZONE [Concomitant]
     Active Substance: PIOGLITAZONE
     Dosage: UNK
     Route: 065
  6. RAMIPRIL [Concomitant]
     Active Substance: RAMIPRIL
     Dosage: UNK
     Route: 065
  7. SIMVASTATIN [Concomitant]
     Active Substance: SIMVASTATIN
     Dosage: UNK
     Route: 065
  8. TAMSULOSIN HYDROCHLORIDE [Concomitant]
     Active Substance: TAMSULOSIN HYDROCHLORIDE
     Dosage: UNK
     Route: 065

REACTIONS (2)
  - Alcohol intolerance [Recovered/Resolved]
  - Alcohol interaction [Unknown]

NARRATIVE: CASE EVENT DATE: 20210716
